FAERS Safety Report 12310473 (Version 1)
Quarter: 2016Q2

REPORT INFORMATION
  Report Type: Spontaneous
  Country: US (occurrence: None)
  Receive Date: 20160426
  Receipt Date: 20160426
  Transmission Date: 20160815
  Serious: Yes (Other)
  Sender: FDA-Public Use
  Company Number: US-ALSI-201600096

PATIENT
  Age: 72 Year
  Sex: Female

DRUGS (2)
  1. OXYGEN. [Suspect]
     Active Substance: OXYGEN
     Indication: DENTAL CARE
     Route: 055
  2. NITROUS OXIDE. [Suspect]
     Active Substance: NITROUS OXIDE
     Indication: DENTAL CARE
     Route: 055

REACTIONS (3)
  - Intentional product misuse [None]
  - Accident [None]
  - Burns second degree [None]
